FAERS Safety Report 23464645 (Version 1)
Quarter: 2024Q1

REPORT INFORMATION
  Report Type: Spontaneous
  Country: RU (occurrence: RU)
  Receive Date: 20240201
  Receipt Date: 20240201
  Transmission Date: 20240409
  Serious: Yes (Other)
  Sender: FDA-Public Use
  Company Number: RU-SANDOZ-SDZ2024RU009552

PATIENT
  Sex: Female
  Weight: 18 kg

DRUGS (1)
  1. AMOXICILLIN\CLAVULANATE POTASSIUM [Suspect]
     Active Substance: AMOXICILLIN\CLAVULANATE POTASSIUM
     Indication: Bronchitis
     Dosage: 20 MG/5 MG/KG/DAY-PER OS, SUSPENSION
     Route: 048
     Dates: start: 202209, end: 202209

REACTIONS (3)
  - Rhinitis [Recovered/Resolved]
  - Urticaria [Recovered/Resolved]
  - Diarrhoea [Recovered/Resolved]

NARRATIVE: CASE EVENT DATE: 20220901
